FAERS Safety Report 18212938 (Version 1)
Quarter: 2020Q3

REPORT INFORMATION
  Report Type: Spontaneous
  Country: CA (occurrence: CA)
  Receive Date: 20200831
  Receipt Date: 20200831
  Transmission Date: 20201103
  Serious: Yes (Other)
  Sender: FDA-Public Use
  Company Number: CA-MYLANLABS-2020M1073109

PATIENT
  Age: 74 Year
  Sex: Female
  Weight: 63 kg

DRUGS (3)
  1. MOVISSE [Suspect]
     Active Substance: NORETHINDRONE
     Indication: POSTMENOPAUSAL HAEMORRHAGE
  2. ESTRADOT [Concomitant]
     Active Substance: ESTRADIOL
     Dosage: UNK
  3. MOVISSE [Suspect]
     Active Substance: NORETHINDRONE
     Indication: WITHDRAWAL BLEED
     Dosage: 2 DOSAGE FORM, CYCLE
     Route: 048

REACTIONS (2)
  - Drug ineffective [Recovered/Resolved]
  - Product substitution issue [Recovered/Resolved]
